FAERS Safety Report 16809486 (Version 1)
Quarter: 2019Q3

REPORT INFORMATION
  Report Type: Spontaneous
  Country: CA (occurrence: CA)
  Receive Date: 20190916
  Receipt Date: 20190916
  Transmission Date: 20191005
  Serious: Yes (Hospitalization, Other)
  Sender: FDA-Public Use
  Company Number: CA-ROCHE-2405039

PATIENT
  Age: 67 Year
  Sex: Female

DRUGS (5)
  1. XOLAIR [Suspect]
     Active Substance: OMALIZUMAB
     Indication: ASTHMA
     Route: 058
     Dates: start: 20160826
  2. XOLAIR [Suspect]
     Active Substance: OMALIZUMAB
     Route: 058
     Dates: start: 20170512
  3. ATROVENT [Concomitant]
     Active Substance: IPRATROPIUM BROMIDE
     Indication: PRODUCT USED FOR UNKNOWN INDICATION
     Route: 055
     Dates: start: 201711
  4. SPIRIVA [Concomitant]
     Active Substance: TIOTROPIUM BROMIDE MONOHYDRATE
     Indication: PRODUCT USED FOR UNKNOWN INDICATION
     Route: 065
     Dates: start: 20150513
  5. SYMBICORT [Concomitant]
     Active Substance: BUDESONIDE\FORMOTEROL FUMARATE DIHYDRATE
     Indication: PRODUCT USED FOR UNKNOWN INDICATION
     Dosage: 2 DF, BID
     Route: 065
     Dates: start: 20130513

REACTIONS (18)
  - Colitis [Unknown]
  - Chest pain [Unknown]
  - Obstructive airways disorder [Unknown]
  - Spirometry abnormal [Unknown]
  - Meniere^s disease [Unknown]
  - Forced expiratory volume decreased [Unknown]
  - Angina pectoris [Unknown]
  - Carbon monoxide diffusing capacity decreased [Unknown]
  - Weight decreased [Unknown]
  - Osteoporosis [Unknown]
  - Bipolar disorder [Unknown]
  - Chest discomfort [Unknown]
  - Dyspnoea exertional [Unknown]
  - Weight increased [Unknown]
  - Asthma [Unknown]
  - Pneumonia [Unknown]
  - Emphysema [Unknown]
  - Vital capacity abnormal [Unknown]

NARRATIVE: CASE EVENT DATE: 201705
